FAERS Safety Report 6933390-6 (Version None)
Quarter: 2010Q3

REPORT INFORMATION
  Report Type: 
  Country: None (occurrence: None)
  Receive Date: 20100820
  Receipt Date: 20100809
  Transmission Date: 20110219
  Serious: Yes (Other)
  Sender: FDA-Public Use
  Company Number: PL-CELGENEUS-129-21880-10080476

PATIENT
  Sex: Male
  Weight: 68 kg

DRUGS (2)
  1. REVLIMID [Suspect]
     Indication: MULTIPLE MYELOMA
     Route: 048
     Dates: start: 20100701
  2. TALIZER [Suspect]
     Indication: MULTIPLE MYELOMA
     Route: 065

REACTIONS (10)
  - ABDOMINAL PAIN [None]
  - AGEUSIA [None]
  - CONSTIPATION [None]
  - DECREASED APPETITE [None]
  - DIZZINESS [None]
  - DYSPHONIA [None]
  - GRANULOCYTOPENIA [None]
  - MALAISE [None]
  - NEUROPATHY PERIPHERAL [None]
  - WEIGHT DECREASED [None]
